FAERS Safety Report 5106184-4 (Version None)
Quarter: 2006Q3

REPORT INFORMATION
  Report Type: 
  Country: None (occurrence: None)
  Receive Date: 20060912
  Receipt Date: 20060831
  Transmission Date: 20061208
  Serious: Yes (Other)
  Sender: FDA-Public Use
  Company Number: 2006070715

PATIENT
  Age: 84 Year
  Sex: Male
  Weight: 70 kg

DRUGS (1)
  1. XALATAN [Suspect]
     Indication: INTRAOCULAR PRESSURE INCREASED
     Dosage: 1 DROP (1 DROP, 1 IN 1 D), OPHTHALMIC
     Route: 047
     Dates: start: 20050210, end: 20050704

REACTIONS (10)
  - CARDIAC DISORDER [None]
  - DECREASED ACTIVITY [None]
  - DISCOMFORT [None]
  - EXTRASYSTOLES [None]
  - FEAR [None]
  - GENERAL PHYSICAL HEALTH DETERIORATION [None]
  - HEART RATE IRREGULAR [None]
  - MUSCLE SPASMS [None]
  - PAIN [None]
  - VENTRICULAR EXTRASYSTOLES [None]
